FAERS Safety Report 5476102-8 (Version None)
Quarter: 2007Q3

REPORT INFORMATION
  Report Type: 
  Country: None (occurrence: None)
  Receive Date: 20070904
  Receipt Date: 20070625
  Transmission Date: 20080115
  Serious: No
  Sender: FDA-Public Use
  Company Number: PHEH2007US09245

PATIENT
  Sex: Female

DRUGS (3)
  1. ENABLEX [Suspect]
     Indication: HYPERTONIC BLADDER
     Dosage: 7.5 MG, QD; 15 MG, QD
     Dates: start: 20070601, end: 20070601
  2. ENABLEX [Suspect]
     Indication: HYPERTONIC BLADDER
     Dosage: 7.5 MG, QD; 15 MG, QD
     Dates: start: 20070601
  3. COUMADIN [Concomitant]

REACTIONS (1)
  - DRUG INEFFECTIVE [None]
